FAERS Safety Report 7453483-7 (Version None)
Quarter: 2011Q2

REPORT INFORMATION
  Report Type: 
  Country: None (occurrence: None)
  Receive Date: 20110502
  Receipt Date: 20110128
  Transmission Date: 20111010
  Serious: No
  Sender: FDA-Public Use
  Company Number: US-ASTRAZENECA-2011SE05204

PATIENT
  Age: 58 Year
  Sex: Female

DRUGS (2)
  1. VITAMINS [Concomitant]
  2. NEXIUM [Suspect]
     Route: 048

REACTIONS (1)
  - IRRITABLE BOWEL SYNDROME [None]
